FAERS Safety Report 7988526-5 (Version None)
Quarter: 2011Q4

REPORT INFORMATION
  Report Type: 
  Country: None (occurrence: None)
  Receive Date: 20111218
  Receipt Date: 20111213
  Transmission Date: 20120403
  Serious: Yes (Hospitalization)
  Sender: FDA-Public Use
  Company Number: US-VERTEX PHARMACEUTICALS INC.-AE-2011-004950

PATIENT
  Sex: Male

DRUGS (7)
  1. CLONAZEPAM [Concomitant]
  2. ZOLPIDEM [Concomitant]
  3. PEGASYS [Concomitant]
     Indication: HEPATITIS C
     Route: 058
  4. RANITIDINE [Concomitant]
  5. INCIVEK [Suspect]
     Indication: HEPATITIS C
     Route: 048
     Dates: start: 20110101, end: 20110101
  6. RIBAVIRIN [Concomitant]
     Indication: HEPATITIS C
     Route: 048
  7. SPIRIVA [Concomitant]

REACTIONS (3)
  - DECREASED APPETITE [None]
  - RASH GENERALISED [None]
  - INSOMNIA [None]
